FAERS Safety Report 18542929 (Version 1)
Quarter: 2020Q4

REPORT INFORMATION
  Report Type: Spontaneous
  Country: CA (occurrence: CA)
  Receive Date: 20201124
  Receipt Date: 20201124
  Transmission Date: 20210114
  Serious: Yes (Other)
  Sender: FDA-Public Use
  Company Number: CA-PFIZER INC-2020166038

PATIENT
  Age: 25 Year
  Sex: Female

DRUGS (5)
  1. XELJANZ [Suspect]
     Active Substance: TOFACITINIB CITRATE
     Indication: COLITIS ULCERATIVE
     Dosage: 10 MG, 2X/DAY
     Route: 048
     Dates: start: 20190301, end: 2020
  2. XELJANZ [Suspect]
     Active Substance: TOFACITINIB CITRATE
     Dosage: 5 MG, 2X/DAY
     Route: 048
     Dates: start: 202003, end: 2020
  3. CORTIMAX [Concomitant]
     Indication: COLITIS ULCERATIVE
     Dosage: 9 MG, 1X/DAY
     Route: 048
     Dates: start: 20190213
  4. XELJANZ [Suspect]
     Active Substance: TOFACITINIB CITRATE
     Dosage: 10 MG, 2X/DAY
     Route: 048
     Dates: start: 202005
  5. CORTIMENT [Concomitant]
     Indication: COLITIS ULCERATIVE
     Dosage: 9 MG, 1X/DAY
     Route: 048
     Dates: start: 20190213

REACTIONS (6)
  - Malaise [Unknown]
  - Gastrointestinal mucosa hyperaemia [Unknown]
  - Abdominal pain [Unknown]
  - Drug ineffective [Unknown]
  - Abdominal distension [Unknown]
  - Large intestinal ulcer [Unknown]

NARRATIVE: CASE EVENT DATE: 201907
